FAERS Safety Report 16785046 (Version 1)
Quarter: 2019Q4

REPORT INFORMATION
  Report Type: Spontaneous
  Country: US (occurrence: US)
  Receive Date: 20190907
  Receipt Date: 20190907
  Transmission Date: 20200122
  Serious: No
  Sender: FDA-Public Use
  Company Number: None

PATIENT
  Age: 60 Year
  Sex: Male
  Weight: 83.25 kg

DRUGS (1)
  1. PILOCARPINE HYDROCHLORIDE OPHTHALMIC SOLUTION [Suspect]
     Active Substance: PILOCARPINE HYDROCHLORIDE
     Indication: INFECTION PROPHYLAXIS
     Dosage: ?          QUANTITY:1 DROP(S);?
     Route: 047
     Dates: start: 20190502, end: 20190506

REACTIONS (7)
  - Blepharospasm [None]
  - Ocular hyperaemia [None]
  - Eye irritation [None]
  - Eye pain [None]
  - Intraocular pressure increased [None]
  - Tremor [None]
  - Photophobia [None]

NARRATIVE: CASE EVENT DATE: 20190503
